FAERS Safety Report 22023504 (Version 1)
Quarter: 2023Q1

REPORT INFORMATION
  Report Type: Spontaneous
  Country: US (occurrence: US)
  Receive Date: 20230223
  Receipt Date: 20230223
  Transmission Date: 20230417
  Serious: Yes (Other)
  Sender: FDA-Public Use
  Company Number: US-MLMSERVICE-20230210-4098874-1

PATIENT
  Age: 1 Decade
  Sex: Male

DRUGS (1)
  1. ATENOLOL [Suspect]
     Active Substance: ATENOLOL
     Indication: Atrial flutter
     Dosage: UNK
     Route: 065

REACTIONS (2)
  - Nodal rhythm [Unknown]
  - Sinus bradycardia [Unknown]
